FAERS Safety Report 6839416-2 (Version None)
Quarter: 2010Q3

REPORT INFORMATION
  Report Type: 
  Country: None (occurrence: None)
  Receive Date: 20100714
  Receipt Date: 20100707
  Transmission Date: 20110219
  Serious: Yes (Other)
  Sender: FDA-Public Use
  Company Number: DE-BAYER-201029678GPV

PATIENT
  Age: 95 Year
  Sex: Female

DRUGS (20)
  1. CIPRO [Suspect]
     Dosage: TOTAL DAILY DOSE: 500 MG  UNIT DOSE: 500 MG
     Route: 048
     Dates: start: 20071017, end: 20071018
  2. CEFUROXIME [Suspect]
     Dosage: TOTAL DAILY DOSE: 1000 MG  UNIT DOSE: 500 MG
     Route: 048
     Dates: start: 20071018, end: 20071022
  3. GLIBENCLAMID [Concomitant]
     Dosage: UNIT DOSE: 3.5 MG
     Route: 048
     Dates: start: 20071016, end: 20071017
  4. GLIBENCLAMID [Concomitant]
     Dosage: UNIT DOSE: 3.5 MG
     Route: 048
     Dates: start: 20071019, end: 20071019
  5. GLIBENCLAMID [Concomitant]
     Route: 048
     Dates: start: 20071017, end: 20071018
  6. KALINOR-BRAUSETABLETTEN [Concomitant]
     Route: 048
     Dates: start: 20071017, end: 20071018
  7. KALINOR-BRAUSETABLETTEN [Concomitant]
     Route: 048
     Dates: start: 20071025, end: 20071027
  8. MAGNESIUM VERLA N [Concomitant]
     Route: 048
     Dates: start: 20071014, end: 20071014
  9. MAGNESIUM VERLA N [Concomitant]
     Route: 048
     Dates: start: 20071015, end: 20071017
  10. MAGNESIUM VERLA N [Concomitant]
     Route: 048
     Dates: start: 20071018, end: 20071025
  11. MAGNESIUM VERLA N [Concomitant]
     Route: 048
     Dates: start: 20071026
  12. MUTAFLOR [Concomitant]
     Dosage: UNIT DOSE: 100 MG
     Route: 048
     Dates: start: 20071023, end: 20071029
  13. PLAVIX [Concomitant]
     Dosage: UNIT DOSE: 75 MG
     Route: 048
     Dates: start: 20071023
  14. PLAVIX [Concomitant]
     Dosage: UNIT DOSE: 75 MG
     Route: 048
     Dates: end: 20071014
  15. FURORESE [Concomitant]
     Dosage: UNIT DOSE: 40 MG
     Route: 048
  16. METOPROLOL SUCCINATE [Concomitant]
     Route: 048
  17. METOPROLOL SUCCINATE [Concomitant]
     Route: 048
     Dates: start: 20071015, end: 20071016
  18. NORVASC [Concomitant]
     Dosage: UNIT DOSE: 5 MG
     Route: 048
     Dates: start: 20071027, end: 20071102
  19. ASPIRIN [Concomitant]
     Dosage: UNIT DOSE: 100 MG
     Route: 048
  20. ZOLPIDEM AL [Concomitant]
     Dosage: UNIT DOSE: 500 MG
     Route: 048
     Dates: end: 20071020

REACTIONS (4)
  - CARDIAC FAILURE [None]
  - OLIGURIA [None]
  - PULMONARY OEDEMA [None]
  - RENAL FAILURE ACUTE [None]
